FAERS Safety Report 15340141 (Version 1)
Quarter: 2018Q3

REPORT INFORMATION
  Report Type: Spontaneous
  Country: RU (occurrence: RU)
  Receive Date: 20180831
  Receipt Date: 20180831
  Transmission Date: 20181010
  Serious: Yes (Death)
  Sender: FDA-Public Use
  Company Number: RU-PFIZER INC-2018259560

PATIENT
  Age: 30 Year
  Sex: Female

DRUGS (3)
  1. INLYTA [Suspect]
     Active Substance: AXITINIB
     Indication: RENAL CANCER
     Dosage: 1ST WEEK 5 MG 2X/DAY
     Route: 048
     Dates: start: 20180615, end: 201806
  2. INLYTA [Suspect]
     Active Substance: AXITINIB
     Dosage: 2ND WEEK 7.5 MG 2X/DAY
     Route: 048
     Dates: start: 201806, end: 201806
  3. INLYTA [Suspect]
     Active Substance: AXITINIB
     Dosage: 3D WEEK 10 MG 2X/DAY
     Route: 048
     Dates: start: 201806, end: 20180630

REACTIONS (2)
  - Neoplasm progression [Unknown]
  - Death [Fatal]

NARRATIVE: CASE EVENT DATE: 20180626
